FAERS Safety Report 25452268 (Version 1)
Quarter: 2025Q2

REPORT INFORMATION
  Report Type: Spontaneous
  Country: DE (occurrence: DE)
  Receive Date: 20250618
  Receipt Date: 20250618
  Transmission Date: 20250716
  Serious: Yes (Hospitalization)
  Sender: TEVA
  Company Number: DE-TEVA-VS-3340484

PATIENT
  Age: 47 Year
  Sex: Female

DRUGS (1)
  1. COPAXONE [Suspect]
     Active Substance: GLATIRAMER ACETATE
     Indication: Relapsing-remitting multiple sclerosis
     Route: 058

REACTIONS (14)
  - Injection site necrosis [Recovered/Resolved]
  - Injection site pain [Recovering/Resolving]
  - Injection site discolouration [Unknown]
  - Chest discomfort [Recovered/Resolved]
  - Injection site haematoma [Unknown]
  - Erythema [Recovered/Resolved]
  - Dyspnoea [Recovered/Resolved]
  - Flushing [Recovered/Resolved]
  - Injection site nodule [Unknown]
  - Injection site indentation [Unknown]
  - Immediate post-injection reaction [Recovered/Resolved]
  - Injection site scar [Not Recovered/Not Resolved]
  - Injection site swelling [Unknown]
  - Sensory disturbance [Not Recovered/Not Resolved]

NARRATIVE: CASE EVENT DATE: 20250101
